FAERS Safety Report 12799560 (Version 3)
Quarter: 2018Q3

REPORT INFORMATION
  Report Type: Report from Study
  Country: US (occurrence: US)
  Receive Date: 20160930
  Receipt Date: 20180815
  Transmission Date: 20181010
  Serious: Yes (Death, Hospitalization)
  Sender: FDA-Public Use
  Company Number: US-KERYX BIOPHARMACEUTICALS, INC.-2016US002264

PATIENT
  Age: 81 Year
  Sex: Male
  Weight: 83.2 kg

DRUGS (8)
  1. AMIODARONE [Concomitant]
     Active Substance: AMIODARONE
     Indication: ARRHYTHMIA
     Dosage: 100 MG, QD
     Route: 048
     Dates: start: 20151107
  2. FERRLECIT                          /00023541/ [Concomitant]
     Indication: MINERAL SUPPLEMENTATION
     Dosage: 125 MG, Q2WK
     Route: 042
     Dates: start: 20160505
  3. CLOPIDOGREL [Concomitant]
     Active Substance: CLOPIDOGREL BISULFATE
     Indication: ANTICOAGULATION DRUG LEVEL
     Dosage: 75 MG, QD
     Route: 048
     Dates: start: 20151125
  4. RANEXA [Concomitant]
     Active Substance: RANOLAZINE
     Indication: ANGINA PECTORIS
     Dosage: 500 MG, BID
     Route: 048
     Dates: start: 20160902
  5. PROAMATINE [Concomitant]
     Active Substance: MIDODRINE HYDROCHLORIDE
     Indication: HYPOTENSION
     Dosage: 10 MG, 3 TIMES/WK
     Route: 048
     Dates: start: 20160606
  6. ARANESP [Concomitant]
     Active Substance: DARBEPOETIN ALFA
     Indication: ANAEMIA
     Dosage: 35 MICRO?G, QWK
     Route: 042
     Dates: start: 20151001
  7. AURYXIA [Suspect]
     Active Substance: TETRAFERRIC TRICITRATE DECAHYDRATE
     Indication: BLOOD PHOSPHORUS INCREASED
     Dosage: 3 TAB, QD
     Dates: start: 20160606, end: 20160905
  8. ASPIRIN                            /00002701/ [Concomitant]
     Active Substance: ASPIRIN
     Indication: ATRIAL FIBRILLATION
     Dosage: 81 MG, QD
     Route: 048
     Dates: start: 20151107

REACTIONS (5)
  - Loss of consciousness [Unknown]
  - Hypotension [Unknown]
  - Cardiac arrest [Fatal]
  - Angina unstable [Unknown]
  - Hypoxic-ischaemic encephalopathy [Unknown]

NARRATIVE: CASE EVENT DATE: 20160905
